FAERS Safety Report 4262970-4 (Version None)
Quarter: 2004Q1

REPORT INFORMATION
  Report Type: 
  Country: None (occurrence: None)
  Receive Date: 20040105
  Receipt Date: 20031223
  Transmission Date: 20041129
  Serious: Yes (Hospitalization)
  Sender: FDA-Public Use
  Company Number: FR-BRISTOL-MYERS SQUIBB COMPANY-12463816

PATIENT
  Age: 56 Year
  Sex: Female

DRUGS (14)
  1. ELISOR [Suspect]
     Route: 048
     Dates: start: 20030901, end: 20031009
  2. NORSET [Suspect]
     Route: 048
     Dates: start: 20030901, end: 20031009
  3. RIVOTRIL [Suspect]
     Route: 048
     Dates: start: 20030901, end: 20031009
  4. ALLOPURINOL [Suspect]
     Route: 048
     Dates: start: 20030901, end: 20031009
  5. STILNOX [Suspect]
     Route: 048
     Dates: start: 20030915, end: 20031009
  6. TERCIAN [Suspect]
     Route: 048
     Dates: start: 20031002, end: 20031009
  7. HYDROCORTISONE [Concomitant]
  8. MOPRAL [Concomitant]
  9. SEROPRAM [Concomitant]
  10. LYSANXIA [Concomitant]
  11. AMAREL [Concomitant]
  12. ATHYMIL [Concomitant]
     Dates: start: 20031005
  13. XANAX [Concomitant]
     Dates: start: 20031005
  14. ATARAX [Concomitant]
     Dates: start: 20030901, end: 20031009

REACTIONS (2)
  - CHOLESTASIS [None]
  - CYTOLYTIC HEPATITIS [None]
